FAERS Safety Report 24816040 (Version 1)
Quarter: 2025Q1

REPORT INFORMATION
  Report Type: Spontaneous
  Country: US (occurrence: None)
  Receive Date: 20250106
  Receipt Date: 20250106
  Transmission Date: 20250409
  Serious: No
  Sender: FDA-CTU
  Company Number: None

PATIENT
  Age: 32 Year
  Sex: Female

DRUGS (1)
  1. EMGALITY [Suspect]
     Active Substance: GALCANEZUMAB-GNLM
     Indication: Migraine with aura
     Dosage: FREQUENCY : MONTHLY;?
     Route: 058
     Dates: start: 20241001, end: 20241121

REACTIONS (5)
  - Menstrual disorder [None]
  - Nervousness [None]
  - Hormone level abnormal [None]
  - Premenstrual dysphoric disorder [None]
  - Condition aggravated [None]

NARRATIVE: CASE EVENT DATE: 20241001
